FAERS Safety Report 21240994 (Version 1)
Quarter: 2022Q3

REPORT INFORMATION
  Report Type: Spontaneous
  Country: JP (occurrence: JP)
  Receive Date: 20220823
  Receipt Date: 20220823
  Transmission Date: 20221027
  Serious: Yes (Hospitalization, Other)
  Sender: FDA-Public Use
  Company Number: JP-MLMSERVICE-20220810-3690587-1

PATIENT
  Age: 66 Year
  Sex: Male

DRUGS (3)
  1. CISPLATIN [Suspect]
     Active Substance: CISPLATIN
     Indication: Laryngeal cancer stage I
     Dosage: 90 MG (70MG/M^2) ON DAY 4 AND 100 MG (70 MG/M^2) ON DAY 4
  2. DOCETAXEL [Suspect]
     Active Substance: DOCETAXEL
     Indication: Laryngeal cancer stage I
     Dosage: 80 MG (60 MG/M^2) ON DAY 1
  3. FLUOROURACIL [Suspect]
     Active Substance: FLUOROURACIL
     Indication: Metastases to lymph nodes
     Dosage: 1000 MG (750 MG/M^2) ON DAY 1 TO 5

REACTIONS (5)
  - Pharyngeal oedema [Recovering/Resolving]
  - Laryngeal oedema [Recovering/Resolving]
  - Obstructive sleep apnoea syndrome [Recovering/Resolving]
  - Somnolence [Recovering/Resolving]
  - Obstructive airways disorder [Recovering/Resolving]
